FAERS Safety Report 7037787-8 (Version None)
Quarter: 2010Q4

REPORT INFORMATION
  Report Type: 
  Country: None (occurrence: None)
  Receive Date: 20101011
  Receipt Date: 20101001
  Transmission Date: 20110411
  Serious: Yes (Hospitalization)
  Sender: FDA-Public Use
  Company Number: IT-NOVOPROD-315990

PATIENT
  Sex: Female

DRUGS (2)
  1. NOVONORM [Suspect]
     Indication: DIABETES MELLITUS
     Dosage: 2 MG, QD
     Route: 048
     Dates: start: 20100420, end: 20100523
  2. METBAY [Suspect]
     Indication: DIABETES MELLITUS
     Dosage: 500 MG, QD
     Route: 048
     Dates: start: 20100420, end: 20100523

REACTIONS (3)
  - ASTHENIA [None]
  - DERMATITIS [None]
  - PRURITUS GENERALISED [None]
